FAERS Safety Report 6383926-1 (Version None)
Quarter: 2009Q4

REPORT INFORMATION
  Report Type: 
  Country: None (occurrence: None)
  Receive Date: 20091001
  Receipt Date: 20090922
  Transmission Date: 20100525
  Serious: Yes (Life-Threatening, Hospitalization, Disabling, Other)
  Sender: FDA-Public Use
  Company Number: JP-NAPPMUNDI-MAG-2009-0001060

PATIENT
  Age: 78 Year
  Sex: Male
  Weight: 47 kg

DRUGS (12)
  1. OXYCODONE HCL [Suspect]
     Indication: RENAL CELL CARCINOMA
     Dosage: 10 MG, BID
     Route: 048
     Dates: start: 20090703, end: 20090707
  2. SUNITINIB [Suspect]
     Indication: RENAL CELL CARCINOMA
     Dosage: 12.5 MG, DAILY
     Route: 048
     Dates: start: 20090703, end: 20090707
  3. MOBIC [Concomitant]
     Indication: RENAL CELL CARCINOMA
     Dosage: 10 MG, DAILY
     Route: 048
     Dates: start: 20090703, end: 20090707
  4. ALLOPURINOL [Concomitant]
     Dosage: UNK
  5. TENORMIN [Concomitant]
     Dosage: UNK
     Dates: end: 20090707
  6. AMLODIPINE [Concomitant]
     Dosage: UNK
     Dates: end: 20090707
  7. ASPIRIN [Concomitant]
     Dosage: UNK
     Dates: end: 20090707
  8. PANTOSIN [Concomitant]
     Dosage: UNK
     Dates: start: 20090703, end: 20090707
  9. MAGNESIUM OXIDE [Concomitant]
     Dosage: UNK
     Dates: start: 20090703, end: 20090707
  10. NOVAMIN                            /00013301/ [Concomitant]
     Dosage: UNK
     Dates: start: 20090703, end: 20090707
  11. PRIMPERAN                          /00041901/ [Concomitant]
     Dosage: UNK
     Dates: start: 20090706, end: 20090708
  12. INTERFERON ALFA [Concomitant]
     Dosage: UNK
     Dates: start: 20080707, end: 20090628

REACTIONS (9)
  - ALTERED STATE OF CONSCIOUSNESS [None]
  - DECREASED APPETITE [None]
  - DIPLEGIA [None]
  - HYPONATRAEMIA [None]
  - NAUSEA [None]
  - PANCYTOPENIA [None]
  - PNEUMONIA [None]
  - RESPIRATORY ARREST [None]
  - VOMITING [None]
